FAERS Safety Report 14825576 (Version 2)
Quarter: 2018Q3

REPORT INFORMATION
  Report Type: Report from Study
  Country: JP (occurrence: JP)
  Receive Date: 20180430
  Receipt Date: 20180705
  Transmission Date: 20181010
  Serious: Yes (Hospitalization, Other)
  Sender: FDA-Public Use
  Company Number: JP-BRISTOL-MYERS SQUIBB COMPANY-BMS-2017-043522

PATIENT
  Age: 67 Year
  Sex: Female

DRUGS (1)
  1. NIVOLUMAB [Suspect]
     Active Substance: NIVOLUMAB
     Indication: HEAD AND NECK CANCER
     Dosage: 3 MG/KG, Q2WK
     Route: 041
     Dates: start: 20170427, end: 201705

REACTIONS (6)
  - Disorientation [Unknown]
  - Vomiting [Unknown]
  - Nausea [Unknown]
  - Brain neoplasm malignant [Recovering/Resolving]
  - Cognitive disorder [Recovered/Resolved]
  - Gait disturbance [Unknown]

NARRATIVE: CASE EVENT DATE: 20170501
